FAERS Safety Report 6403004-2 (Version None)
Quarter: 2009Q4

REPORT INFORMATION
  Report Type: 
  Country: None (occurrence: None)
  Receive Date: 20091016
  Receipt Date: 20091006
  Transmission Date: 20100525
  Serious: Yes (Hospitalization)
  Sender: FDA-Public Use
  Company Number: KR-JNJFOC-20091002902

PATIENT
  Age: 57 Year
  Sex: Female

DRUGS (3)
  1. REMICADE [Suspect]
     Indication: RHEUMATOID ARTHRITIS
     Dosage: 6 INFUSIONS
     Route: 042
     Dates: start: 20050201
  2. METHOTREXATE [Concomitant]
     Indication: RHEUMATOID ARTHRITIS
  3. SOLONDO [Concomitant]
     Indication: RHEUMATOID ARTHRITIS

REACTIONS (2)
  - PERITONITIS [None]
  - TUBERCULOSIS [None]
